FAERS Safety Report 5463867-4 (Version None)
Quarter: 2007Q3

REPORT INFORMATION
  Report Type: 
  Country: None (occurrence: None)
  Receive Date: 20070820
  Receipt Date: 20070531
  Transmission Date: 20080115
  Serious: No
  Sender: FDA-Public Use
  Company Number: US-1163166

PATIENT
  Sex: Female

DRUGS (1)
  1. NEVANAC [Suspect]
     Dosage: OPHTHALMIC
     Route: 047

REACTIONS (3)
  - EYE PAIN [None]
  - PHOTOSENSITIVITY REACTION [None]
  - VISUAL ACUITY REDUCED [None]
